FAERS Safety Report 9927861 (Version 4)
Quarter: 2015Q1

REPORT INFORMATION
  Report Type: Spontaneous
  Country: JP (occurrence: JP)
  Receive Date: 20140227
  Receipt Date: 20150120
  Transmission Date: 20150721
  Serious: Yes (Death)
  Sender: FDA-Public Use
  Company Number: JP-ROCHE-1354854

PATIENT
  Age: 51 Year
  Sex: Male
  Weight: 32 kg

DRUGS (7)
  1. TAMIFLU [Suspect]
     Active Substance: OSELTAMIVIR PHOSPHATE
     Indication: INFLUENZA
     Route: 050
     Dates: start: 20140216, end: 20140219
  2. LIORESAL [Concomitant]
     Active Substance: BACLOFEN
     Indication: CEREBRAL PALSY
     Route: 050
  3. LANSOPRAZOLE. [Concomitant]
     Active Substance: LANSOPRAZOLE
     Indication: FUNCTIONAL GASTROINTESTINAL DISORDER
     Dosage: DAYTIME
     Route: 050
     Dates: end: 20140221
  4. GASMOTIN [Concomitant]
     Active Substance: MOSAPRIDE CITRATE
     Indication: FUNCTIONAL GASTROINTESTINAL DISORDER
     Route: 050
  5. DEPAKENE [Concomitant]
     Active Substance: VALPROIC ACID
     Indication: EPILEPSY
     Route: 050
     Dates: start: 20091119
  6. CLARITHROMYCIN. [Concomitant]
     Active Substance: CLARITHROMYCIN
     Indication: BRONCHITIS CHRONIC
     Dosage: MORNING
     Route: 050
  7. MAGMITT [Concomitant]
     Active Substance: MAGNESIUM OXIDE
     Indication: FUNCTIONAL GASTROINTESTINAL DISORDER
     Route: 050

REACTIONS (3)
  - Hepatitis fulminant [Fatal]
  - Multi-organ failure [Fatal]
  - Enterocolitis haemorrhagic [Fatal]

NARRATIVE: CASE EVENT DATE: 20140219
